FAERS Safety Report 16665029 (Version 1)
Quarter: 2019Q3

REPORT INFORMATION
  Report Type: Spontaneous
  Country: US (occurrence: US)
  Receive Date: 20190803
  Receipt Date: 20190803
  Transmission Date: 20191004
  Serious: Yes (Death, Other)
  Sender: FDA-Public Use
  Company Number: US-ACCORD-073358

PATIENT
  Age: 62 Year
  Sex: Female

DRUGS (9)
  1. RANITIDINE. [Concomitant]
     Active Substance: RANITIDINE
  2. DEXAMETHASONE. [Concomitant]
     Active Substance: DEXAMETHASONE
  3. PEGFILGRASTIM [Concomitant]
     Active Substance: PEGFILGRASTIM
  4. DIPHENHYDRAMINE. [Concomitant]
     Active Substance: DIPHENHYDRAMINE
  5. DOCETAXEL ACCORD [Suspect]
     Active Substance: DOCETAXEL
     Indication: OVARIAN CANCER
     Dosage: NUMBER OF CYCLES: 12
     Dates: start: 201303, end: 20160427
  6. BEVACIZUMAB. [Concomitant]
     Active Substance: BEVACIZUMAB
  7. GEMCITABINE. [Concomitant]
     Active Substance: GEMCITABINE
  8. CARBOPLATIN. [Concomitant]
     Active Substance: CARBOPLATIN
  9. PALONOSETRON/PALONOSETRON HYDROCHLORIDE [Concomitant]

REACTIONS (2)
  - Off label use [Unknown]
  - Alopecia [Not Recovered/Not Resolved]

NARRATIVE: CASE EVENT DATE: 2013
